FAERS Safety Report 10917319 (Version 1)
Quarter: 2015Q1

REPORT INFORMATION
  Report Type: Spontaneous
  Country: FR (occurrence: FR)
  Receive Date: 20150316
  Receipt Date: 20150316
  Transmission Date: 20150721
  Serious: Yes (Other)
  Sender: FDA-Public Use
  Company Number: FR-JNJFOC-20150303179

PATIENT
  Sex: Female

DRUGS (2)
  1. RISPERDAL [Suspect]
     Active Substance: RISPERIDONE
     Indication: PRODUCT USED FOR UNKNOWN INDICATION
     Route: 065
  2. RISPERDAL [Suspect]
     Active Substance: RISPERIDONE
     Indication: PRODUCT USED FOR UNKNOWN INDICATION
     Route: 065

REACTIONS (11)
  - Rheumatoid arthritis [Unknown]
  - Oedema [Unknown]
  - Cervix carcinoma [Unknown]
  - Tachycardia [Unknown]
  - Constipation [Unknown]
  - Eczema [Unknown]
  - Artificial menopause [Unknown]
  - Dysuria [Unknown]
  - Psoriasis [Unknown]
  - Paraesthesia [Unknown]
  - Weight increased [Unknown]
